FAERS Safety Report 7043010-0 (Version None)
Quarter: 2010Q4

REPORT INFORMATION
  Report Type: 
  Country: None (occurrence: None)
  Receive Date: 20101013
  Receipt Date: 20100907
  Transmission Date: 20110411
  Serious: No
  Sender: FDA-Public Use
  Company Number: US-BRISTOL-MYERS SQUIBB COMPANY-14705115

PATIENT
  Age: 77 Year
  Sex: Female
  Weight: 61 kg

DRUGS (9)
  1. GLUCOPHAGE XR [Suspect]
     Indication: TYPE 2 DIABETES MELLITUS
     Dosage: 2 DOSAGE FORM = 2 TABS TAKING AFTER THE EVENING MEAL 16 YEARS AGO
     Route: 048
  2. WELCHOL [Concomitant]
     Dosage: 1DF=1TAB
  3. ACIPHEX [Concomitant]
  4. ACTONEL [Concomitant]
  5. CENTRUM SILVER [Concomitant]
  6. MULTI-VITAMIN [Concomitant]
  7. ASCORBIC ACID [Concomitant]
  8. ASPIRIN [Concomitant]
  9. ALLEGRA [Concomitant]
     Indication: HYPERSENSITIVITY

REACTIONS (4)
  - HEADACHE [None]
  - OESOPHAGEAL PAIN [None]
  - ORAL DISCOMFORT [None]
  - THROAT IRRITATION [None]
